FAERS Safety Report 11115883 (Version 5)
Quarter: 2015Q3

REPORT INFORMATION
  Report Type: Spontaneous
  Country: US (occurrence: US)
  Receive Date: 20150515
  Receipt Date: 20150731
  Transmission Date: 20151125
  Serious: Yes (Other)
  Sender: FDA-Public Use
  Company Number: US-JNJFOC-20150509487

PATIENT
  Age: 57 Year
  Sex: Female
  Weight: 102.51 kg

DRUGS (7)
  1. NEURONTIN [Concomitant]
     Active Substance: GABAPENTIN
     Indication: DRUG THERAPY
     Route: 065
     Dates: start: 20140513
  2. NEURONTIN [Concomitant]
     Active Substance: GABAPENTIN
     Indication: ANXIETY
     Route: 065
     Dates: start: 20140513
  3. BENZOTROPINE [Concomitant]
     Active Substance: BENZTROPINE
     Indication: EXTRAPYRAMIDAL DISORDER
     Route: 065
     Dates: start: 20140513
  4. RISPERDAL CONSTA [Suspect]
     Active Substance: RISPERIDONE
     Indication: PSYCHOTIC DISORDER
     Route: 030
     Dates: start: 20140513, end: 20140826
  5. BENZOTROPINE [Concomitant]
     Active Substance: BENZTROPINE
     Indication: MUSCULOSKELETAL STIFFNESS
     Route: 065
     Dates: start: 20140513
  6. RISPERDAL CONSTA [Suspect]
     Active Substance: RISPERIDONE
     Indication: DRUG THERAPY
     Route: 030
     Dates: start: 20140513, end: 20140826
  7. INDERAL [Concomitant]
     Active Substance: PROPRANOLOL HYDROCHLORIDE
     Indication: EXTRAPYRAMIDAL DISORDER
     Route: 065
     Dates: start: 20140715

REACTIONS (3)
  - Vaginal haemorrhage [Unknown]
  - Hyperprolactinaemia [Recovering/Resolving]
  - Pituitary tumour benign [Unknown]

NARRATIVE: CASE EVENT DATE: 20140807
